FAERS Safety Report 4518473-2 (Version None)
Quarter: 2004Q4

REPORT INFORMATION
  Report Type: 
  Country: None (occurrence: None)
  Receive Date: 20041202
  Receipt Date: 20041118
  Transmission Date: 20050328
  Serious: Yes (Disabling, Other)
  Sender: FDA-Public Use
  Company Number: CIP04002504

PATIENT

DRUGS (2)
  1. ASACOL [Suspect]
     Indication: COLITIS ULCERATIVE
     Dosage: 1 TABLET, DAILY, ORAL
     Route: 048
     Dates: end: 20040501
  2. ASACOL [Suspect]
     Indication: COLITIS ULCERATIVE
     Dosage: 1 TABLET, DAILY, ORAL
     Route: 048
     Dates: start: 20040501

REACTIONS (2)
  - DIALYSIS [None]
  - RENAL DISORDER [None]
